FAERS Safety Report 7653538-8 (Version None)
Quarter: 2011Q3

REPORT INFORMATION
  Report Type: 
  Country: None (occurrence: None)
  Receive Date: 20110803
  Receipt Date: 20110727
  Transmission Date: 20111222
  Serious: No
  Sender: FDA-Public Use
  Company Number: US-PFIZER INC-2011132568

PATIENT
  Sex: Female
  Weight: 74.376 kg

DRUGS (19)
  1. KLONOPIN [Concomitant]
     Indication: NERVOUS SYSTEM DISORDER
     Dosage: UNK
  2. RELISTOR [Suspect]
     Indication: CONSTIPATION
  3. FISH OIL [Concomitant]
     Indication: CARDIAC DISORDER
     Dosage: 1000 MG, 4X/DAY
  4. CYCLAMEN [Concomitant]
     Indication: MUSCLE SPASMS
     Dosage: 20 MG, UNK
  5. CYMBALTA [Concomitant]
     Indication: DEPRESSION
     Dosage: 60 MG, DAILY
  6. PROTONIX [Concomitant]
     Indication: GASTRIC DISORDER
     Dosage: DAILY
  7. TRICOR [Concomitant]
     Indication: BLOOD CHOLESTEROL ABNORMAL
     Dosage: 48 MG, DAILY
  8. CYMBALTA [Concomitant]
     Indication: NERVOUS SYSTEM DISORDER
  9. CITRACAL [Concomitant]
     Indication: BONE DISORDER
     Dosage: UNK, THREE TIMES A DAY
  10. NEXIUM [Concomitant]
     Indication: GASTRIC DISORDER
     Dosage: 40 MG, DAILY
     Route: 048
  11. OXYCODONE [Concomitant]
     Indication: OSTEOPOROSIS
     Dosage: 15 MG, EVERY 4 HRS
  12. TREPROSTINIL SODIUM [Concomitant]
     Dosage: UNK
  13. CYTOTEC [Concomitant]
     Indication: GASTRIC DISORDER
     Dosage: UNK, 4X/DAY
  14. VITAMIN B-12 [Concomitant]
     Dosage: DAILY
  15. RELISTOR [Suspect]
     Indication: FUNCTIONAL GASTROINTESTINAL DISORDER
     Dosage: 12MG/0.6ML, EVERY OTHER DAY
     Route: 058
     Dates: start: 20110525
  16. ASPIRIN [Concomitant]
     Indication: CARDIAC DISORDER
     Dosage: 81 MG, DAILY
     Route: 048
  17. FAMOTIDINE [Concomitant]
     Dosage: UNK
  18. TRAZODONE [Concomitant]
     Indication: SLEEP DISORDER
     Dosage: 150 MG, DAILY
     Route: 048
  19. LISINOPRIL [Concomitant]
     Indication: BLOOD PRESSURE ABNORMAL
     Dosage: UNK

REACTIONS (2)
  - CONSTIPATION [None]
  - DRUG INEFFECTIVE [None]
